FAERS Safety Report 5719683-9 (Version None)
Quarter: 2008Q2

REPORT INFORMATION
  Report Type: 
  Country: None (occurrence: None)
  Receive Date: 20080423
  Receipt Date: 20070312
  Transmission Date: 20081010
  Serious: Yes (Death)
  Sender: FDA-Public Use
  Company Number: 235313

PATIENT
  Age: 70 Year
  Sex: Male
  Weight: 69.8 kg

DRUGS (3)
  1. AVASTIN [Suspect]
     Indication: NON-SMALL CELL LUNG CANCER
     Dosage: 1048 MG, DAYS 1+22, INTRAVENOUS
     Route: 042
     Dates: start: 20061228, end: 20061228
  2. TAXOL [Concomitant]
  3. CARBOPLATIN [Concomitant]

REACTIONS (3)
  - GASTROINTESTINAL PERFORATION [None]
  - PNEUMONIA ASPIRATION [None]
  - SEPSIS [None]
